FAERS Safety Report 8376622-2 (Version None)
Quarter: 2012Q2

REPORT INFORMATION
  Report Type: 
  Country: None (occurrence: None)
  Receive Date: 20120518
  Receipt Date: 20120504
  Transmission Date: 20120825
  Serious: Yes (Other)
  Sender: FDA-Public Use
  Company Number: 12-357

PATIENT
  Age: 48 Year
  Sex: Female

DRUGS (7)
  1. LOPRESSOR [Concomitant]
  2. NORTRIPTYLINE HCL [Concomitant]
  3. ALEVE [Suspect]
     Indication: SCIATICA
     Dosage: 1-2 / PRN/ ORAL
     Route: 048
     Dates: start: 20111101, end: 20120503
  4. PRILOSEC [Concomitant]
  5. ANTI-INFLAMMATORY/ANTI-RHEUMATIC NON-STEROIDS [Concomitant]
  6. DEPAKOTE [Concomitant]
  7. COZAAR [Concomitant]

REACTIONS (2)
  - BLOOD ALKALINE PHOSPHATASE INCREASED [None]
  - INTESTINAL OBSTRUCTION [None]
